FAERS Safety Report 19939773 (Version 1)
Quarter: 2021Q4

REPORT INFORMATION
  Report Type: Spontaneous
  Country: US (occurrence: US)
  Receive Date: 20211011
  Receipt Date: 20211011
  Transmission Date: 20220303
  Serious: No
  Sender: FDA-Public Use
  Company Number: US-SANOFI-00801189

PATIENT
  Age: 83 Year
  Sex: Male

DRUGS (1)
  1. ELITEK [Suspect]
     Active Substance: RASBURICASE
     Dosage: 6 MG

REACTIONS (3)
  - Monoclonal gammopathy [Unknown]
  - Blood uric acid decreased [Unknown]
  - Product temperature excursion issue [Unknown]
